FAERS Safety Report 13384991 (Version 1)
Quarter: 2017Q1

REPORT INFORMATION
  Report Type: Spontaneous
  Country: AU (occurrence: AU)
  Receive Date: 20170329
  Receipt Date: 20170329
  Transmission Date: 20170429
  Serious: Yes (Other)
  Sender: FDA-Public Use
  Company Number: AU-ABBVIE-17P-008-1921323-00

PATIENT
  Age: 93 Year
  Sex: Female

DRUGS (2)
  1. PANADOL (PARACETAMOL) [Concomitant]
     Active Substance: ACETAMINOPHEN
     Indication: PRODUCT USED FOR UNKNOWN INDICATION
     Route: 065
  2. EPILIM EC [Suspect]
     Active Substance: VALPROATE SODIUM
     Indication: TRIGEMINAL NEURALGIA
     Route: 065

REACTIONS (5)
  - Dementia [Unknown]
  - Somnolence [Unknown]
  - Dysphagia [Unknown]
  - Gait disturbance [Unknown]
  - Tremor [Unknown]
